FAERS Safety Report 7136249-7 (Version None)
Quarter: 2010Q4

REPORT INFORMATION
  Report Type: 
  Country: None (occurrence: None)
  Receive Date: 20101206
  Receipt Date: 20101124
  Transmission Date: 20110411
  Serious: No
  Sender: FDA-Public Use
  Company Number: US-BIOGENIDEC-2010BI018334

PATIENT
  Age: 56 Year
  Sex: Female

DRUGS (2)
  1. TYSABRI [Suspect]
     Indication: MULTIPLE SCLEROSIS
     Route: 042
     Dates: start: 20071024
  2. AMPYRA [Concomitant]

REACTIONS (6)
  - BLADDER DISORDER [None]
  - DEPRESSION [None]
  - MEMORY IMPAIRMENT [None]
  - MUSCLE SPASTICITY [None]
  - MUSCULAR WEAKNESS [None]
  - URINARY INCONTINENCE [None]
